FAERS Safety Report 17588927 (Version 1)
Quarter: 2020Q1

REPORT INFORMATION
  Report Type: Spontaneous
  Country: FR (occurrence: FR)
  Receive Date: 20200327
  Receipt Date: 20200327
  Transmission Date: 20200409
  Serious: Yes (Death, Hospitalization)
  Sender: FDA-Public Use
  Company Number: FR-TEVA-2020-FR-1212106

PATIENT
  Age: 29 Year
  Sex: Female

DRUGS (2)
  1. IBUPROFENE [Suspect]
     Active Substance: IBUPROFEN
     Indication: INFLUENZA LIKE ILLNESS
     Dosage: 1200 MG
     Route: 048
     Dates: start: 20200302, end: 20200305
  2. PARACETAMOL [Concomitant]
     Active Substance: ACETAMINOPHEN
     Indication: INFLUENZA LIKE ILLNESS
     Dosage: 3 GRAM
     Route: 048
     Dates: start: 20200302

REACTIONS (2)
  - Pneumonia [Fatal]
  - Superinfection bacterial [Fatal]

NARRATIVE: CASE EVENT DATE: 20200306
